FAERS Safety Report 10639034 (Version 1)
Quarter: 2014Q4

REPORT INFORMATION
  Report Type: Spontaneous
  Country: US (occurrence: None)
  Receive Date: 20141121
  Receipt Date: 20141121
  Transmission Date: 20150529
  Serious: No
  Sender: FDA-Public Use
  Company Number: 163-10004-14074277

PATIENT
  Age: 59 Year
  Sex: Female

DRUGS (14)
  1. MOMETASONE FUROATE (MOMETASONE FUROATE) (CREAM) [Concomitant]
  2. VITAMIN D3 (CHOLECALCIFEROL) [Concomitant]
  3. CLINORIL (SULINDAC) [Concomitant]
  4. METAXALONE (METAXALONE) (TABLETS) [Concomitant]
  5. OTEZLA [Suspect]
     Active Substance: APREMILAST
     Indication: PSORIATIC ARTHROPATHY
     Dosage: STARTER PARK
     Route: 048
     Dates: start: 20140619
  6. DOXEPIN HCL (DOXEPIN HYDROCHLORIDE) [Concomitant]
     Active Substance: DOXEPIN HYDROCHLORIDE
  7. PROBIOTIC (BIFIDOBACTERIUM LACTIS) [Concomitant]
  8. FOLIC ACID (FOLIC ACID) [Concomitant]
     Active Substance: FOLIC ACID
  9. CYANOCOBALAMIN (CYANOCOBALAMIN) (SOLUTION) [Concomitant]
  10. DHEA (PRASTERONE) [Concomitant]
  11. GABAPENTIN (GABAPENTIN) [Concomitant]
     Active Substance: GABAPENTIN
  12. LEFLUNOMIDE (LEFLUNOMIDE) [Concomitant]
  13. ARMOUR THYROID (THYROID) [Concomitant]
  14. PREMARIN (ESTROGENS CONJUGATED) [Concomitant]

REACTIONS (6)
  - Fatigue [None]
  - Palpitations [None]
  - Dizziness [None]
  - Drug ineffective [None]
  - Asthenia [None]
  - Dyspnoea [None]

NARRATIVE: CASE EVENT DATE: 20140721
